FAERS Safety Report 4969010-X (Version None)
Quarter: 2006Q2

REPORT INFORMATION
  Report Type: 
  Country: None (occurrence: None)
  Receive Date: 20060411
  Receipt Date: 20050309
  Transmission Date: 20061013
  Serious: Yes (Hospitalization)
  Sender: FDA-Public Use
  Company Number: US-MERCK-0503USA02136

PATIENT
  Sex: Female
  Weight: 73 kg

DRUGS (1)
  1. VIOXX [Suspect]
     Indication: ARTHRITIS
     Route: 048
     Dates: start: 20000315, end: 20040908

REACTIONS (10)
  - CEREBROVASCULAR ACCIDENT [None]
  - CHEST PAIN [None]
  - CORONARY ARTERY STENOSIS [None]
  - DIZZINESS [None]
  - ESSENTIAL HYPERTENSION [None]
  - HEMIPARESIS [None]
  - LOSS OF CONSCIOUSNESS [None]
  - PALPITATIONS [None]
  - RENAL ARTERY STENOSIS [None]
  - SYNCOPE [None]
